FAERS Safety Report 9648196 (Version 2)
Quarter: 2014Q1

REPORT INFORMATION
  Report Type: Spontaneous
  Country: DE (occurrence: DE)
  Receive Date: 20131028
  Receipt Date: 20140219
  Transmission Date: 20141002
  Serious: Yes (Hospitalization)
  Sender: FDA-Public Use
  Company Number: PHHY2013DE120654

PATIENT
  Sex: Female
  Weight: 73 kg

DRUGS (14)
  1. ZOMETA [Suspect]
     Indication: METASTASES TO BONE
     Dosage: UNK UKN, 4 ML PER MONTH EVERY 4 WEEKS
     Route: 042
     Dates: start: 20090811
  2. ZOMETA [Suspect]
     Dosage: UNK, UKN, 4 ML PER MONTH EVERY 4 WEEKS
     Route: 042
     Dates: end: 20130503
  3. OMEPRAZOLE [Concomitant]
     Dosage: 20 MG, QD
  4. LISINOPRIL [Concomitant]
     Dosage: 10 MG, QD
  5. TORASEMIDE [Concomitant]
     Dosage: 10 MG, 0.5
  6. ARIMIDEX [Concomitant]
     Dosage: 1 MG, QD
  7. RISPERDAL [Concomitant]
     Dosage: 0.5 MG, TID
  8. GINGIUM [Concomitant]
     Dosage: UNK UKN, QD
  9. FENTANYL [Concomitant]
     Dosage: 75 UG, EVERY 3 DAYS
  10. FENTANYL [Concomitant]
     Dosage: UNK UKN, UNK
     Dates: start: 20130616
  11. LACTULOSE [Concomitant]
     Dosage: 30 ML, QD
  12. CITALOPRAM [Concomitant]
     Dosage: 40 MG, HALF PER DAY
  13. RESTEX [Concomitant]
     Dosage: 25 MG, QD
  14. ZOPICLON [Concomitant]
     Dosage: 7.5 MG, QD

REACTIONS (5)
  - Osteonecrosis of jaw [Recovered/Resolved]
  - Osteomyelitis chronic [Recovered/Resolved]
  - Actinomycosis [Recovering/Resolving]
  - Pain in jaw [Unknown]
  - Osteosclerosis [Recovered/Resolved]
